FAERS Safety Report 12392285 (Version 1)
Quarter: 2016Q2

REPORT INFORMATION
  Report Type: Report from Study
  Country: VE (occurrence: VE)
  Receive Date: 20160523
  Receipt Date: 20160523
  Transmission Date: 20160815
  Serious: Yes (Other)
  Sender: FDA-Public Use
  Company Number: VE-ABBVIE-16K-178-1634518-00

PATIENT
  Sex: Male
  Weight: 27 kg

DRUGS (3)
  1. ASAPRIL [Concomitant]
     Indication: PRODUCT USED FOR UNKNOWN INDICATION
  2. MESALAZINE [Concomitant]
     Active Substance: MESALAMINE
     Indication: PRODUCT USED FOR UNKNOWN INDICATION
  3. HUMIRA [Suspect]
     Active Substance: ADALIMUMAB
     Indication: PRODUCT USED FOR UNKNOWN INDICATION
     Route: 058
     Dates: end: 20160223

REACTIONS (1)
  - Tuberculin test positive [Recovering/Resolving]

NARRATIVE: CASE EVENT DATE: 201601
